FAERS Safety Report 9323686 (Version 1)
Quarter: 2013Q2

REPORT INFORMATION
  Report Type: Spontaneous
  Country: US (occurrence: US)
  Receive Date: 20130603
  Receipt Date: 20130603
  Transmission Date: 20140414
  Serious: Yes (Other)
  Sender: FDA-Public Use
  Company Number: PHEH2013US011735

PATIENT
  Sex: Male

DRUGS (9)
  1. LOTREL [Suspect]
     Indication: BLOOD PRESSURE ABNORMAL
  2. REVLIMID [Suspect]
     Indication: PLASMA CELL MYELOMA
     Dosage: 25 MG, DAILY
     Route: 048
     Dates: start: 201204
  3. REVLIMID [Suspect]
     Dosage: 15 MG, DAILY
     Route: 048
     Dates: start: 201208
  4. ASPIRIN [Concomitant]
  5. FENTANYL [Concomitant]
  6. MULTIVITAMINS [Concomitant]
  7. OXYTOCIN [Concomitant]
  8. EUCERIN [Concomitant]
  9. VITAMIN D [Concomitant]

REACTIONS (4)
  - Fluid retention [Unknown]
  - Hypotension [Unknown]
  - Loss of consciousness [Unknown]
  - Dizziness [Unknown]
